FAERS Safety Report 15159435 (Version 2)
Quarter: 2018Q4

REPORT INFORMATION
  Report Type: Spontaneous
  Country: US (occurrence: US)
  Receive Date: 20180718
  Receipt Date: 20181228
  Transmission Date: 20190204
  Serious: No
  Sender: FDA-Public Use
  Company Number: US-LUNDBECK-DKLU2051127

PATIENT
  Age: 20 Year
  Sex: Female

DRUGS (4)
  1. NORTHERA [Suspect]
     Active Substance: DROXIDOPA
     Indication: SYNCOPE
  2. NORTHERA [Suspect]
     Active Substance: DROXIDOPA
     Indication: DIZZINESS
  3. NORTHERA [Suspect]
     Active Substance: DROXIDOPA
     Indication: AUTONOMIC NEUROPATHY
     Dosage: SCHEDULE D NO TITRATION, FIXED DOSE OF 100 MG TID
     Route: 065
     Dates: start: 20180703
  4. NORTHERA [Suspect]
     Active Substance: DROXIDOPA
     Indication: ORTHOSTATIC HYPOTENSION
     Route: 065

REACTIONS (7)
  - Burning sensation [Unknown]
  - Urticaria [Unknown]
  - Pain in extremity [Unknown]
  - Drug intolerance [Unknown]
  - Headache [Unknown]
  - Hypoaesthesia [Unknown]
  - Blister [Unknown]

NARRATIVE: CASE EVENT DATE: 2018
